FAERS Safety Report 8945367 (Version 4)
Quarter: 2013Q4

REPORT INFORMATION
  Report Type: Report from Study
  Country: CA (occurrence: CA)
  Receive Date: 20121205
  Receipt Date: 20131129
  Transmission Date: 20140711
  Serious: Yes (Hospitalization)
  Sender: FDA-Public Use
  Company Number: PHHY2012CA110173

PATIENT
  Age: 73 Year
  Sex: Male

DRUGS (7)
  1. CLOZARIL [Suspect]
     Indication: TREMOR
     Dosage: 12.5 MG, BID
     Route: 048
     Dates: start: 20070116
  2. CLOZARIL [Suspect]
     Indication: DYSKINESIA
  3. ATENOLOL [Concomitant]
     Dosage: UNK UKN, UNK
  4. AMLODIPINE [Concomitant]
     Dosage: UNK UKN, UNK
  5. AVODART [Concomitant]
     Dosage: UNK UKN, UNK
  6. TAMSULOSIN [Concomitant]
     Dosage: UNK UKN, UNK
  7. LEVODOPA/CARBIDOPA [Concomitant]
     Dosage: 125 MG PER DAY

REACTIONS (4)
  - Cholecystitis infective [Recovered/Resolved]
  - Testicular swelling [Recovered/Resolved]
  - Testicular disorder [Recovered/Resolved]
  - Pyrexia [Recovered/Resolved]
